FAERS Safety Report 19306824 (Version 2)
Quarter: 2021Q2

REPORT INFORMATION
  Report Type: Spontaneous
  Country: US (occurrence: US)
  Receive Date: 20210525
  Receipt Date: 20210615
  Transmission Date: 20210717
  Serious: Yes (Hospitalization, Other)
  Sender: FDA-Public Use
  Company Number: US-ELI_LILLY_AND_COMPANY-US202105007648

PATIENT
  Age: 65 Year
  Sex: Female
  Weight: 81 kg

DRUGS (2)
  1. BAMLANIVIMAB 700MG [Suspect]
     Active Substance: BAMLANIVIMAB
     Indication: COVID-19
     Dosage: UNK, SINGLE
     Route: 065
     Dates: start: 20210512, end: 20210512
  2. ETESEVIMAB 700MG [Suspect]
     Active Substance: ETESEVIMAB
     Indication: COVID-19
     Dosage: UNK UNK, SINGLE
     Route: 065
     Dates: start: 20210512, end: 20210512

REACTIONS (2)
  - Acute respiratory failure [Recovered/Resolved]
  - COVID-19 pneumonia [Recovered/Resolved]

NARRATIVE: CASE EVENT DATE: 20210513
